FAERS Safety Report 8958790 (Version 1)
Quarter: 2012Q4

REPORT INFORMATION
  Report Type: 
  Country: IT (occurrence: IT)
  Receive Date: 20121212
  Receipt Date: 20121212
  Transmission Date: 20130627
  Serious: Yes (Other)
  Sender: FDA-Public Use
  Company Number: PHHY2012IT114142

PATIENT
  Age: 59 Year
  Sex: Female

DRUGS (5)
  1. CLARITHROMYCIN [Suspect]
     Indication: TOOTH EXTRACTION
     Dosage: UNK UKN, UNK
     Route: 048
     Dates: start: 20120418, end: 20120418
  2. AROMASIN [Concomitant]
  3. INDERAL [Concomitant]
     Dosage: UNK UKN, UNK
  4. RIVOTRIL [Concomitant]
  5. PAROXETIN [Concomitant]
     Dosage: UNK UKN, UNK

REACTIONS (1)
  - Dermatitis bullous [Recovering/Resolving]
